FAERS Safety Report 5140009-6 (Version None)
Quarter: 2006Q4

REPORT INFORMATION
  Report Type: 
  Country: None (occurrence: None)
  Receive Date: 20061031
  Receipt Date: 20061018
  Transmission Date: 20070319
  Serious: Yes (Hospitalization)
  Sender: FDA-Public Use
  Company Number: PHEH2006US13075

PATIENT
  Age: 88 Year
  Sex: Male

DRUGS (7)
  1. DIOVAN HCT [Suspect]
     Indication: HYPERTENSION
     Dosage: 160MG VAL/12.5MG HCT
     Dates: start: 20061001
  2. DIOVAN HCT [Suspect]
     Dosage: 160MG VAL/12.5MG HCT
     Dates: start: 20020101, end: 20061001
  3. NORVASC [Suspect]
     Indication: HYPERTENSION
     Dosage: UNK, UNK
     Dates: start: 20061001
  4. NORVASC [Suspect]
     Dosage: UNK, UNK
     Dates: start: 20020101, end: 20061001
  5. TOPROL-XL [Suspect]
     Indication: HYPERTENSION
     Dates: start: 20061001
  6. TOPROL-XL [Suspect]
     Dosage: UNK, UNK
     Dates: start: 20020101, end: 20061001
  7. DIOVAN [Suspect]
     Indication: HYPERTENSION
     Dosage: 160 MG, QD
     Dates: start: 20060901, end: 20061014

REACTIONS (3)
  - BLOOD PRESSURE INADEQUATELY CONTROLLED [None]
  - HYPOTENSION [None]
  - MEDICATION ERROR [None]
